FAERS Safety Report 17866579 (Version 2)
Quarter: 2020Q2

REPORT INFORMATION
  Report Type: Report from Study
  Country: AR (occurrence: AR)
  Receive Date: 20200605
  Receipt Date: 20200622
  Transmission Date: 20200714
  Serious: No
  Sender: FDA-Public Use
  Company Number: NVSC2020AR156903

PATIENT
  Age: 53 Year
  Sex: Female

DRUGS (4)
  1. LEVOTHYROXINE. [Concomitant]
     Active Substance: LEVOTHYROXINE
     Indication: PRODUCT USED FOR UNKNOWN INDICATION
     Dosage: UNK
     Route: 065
  2. FEMARA [Suspect]
     Active Substance: LETROZOLE
     Indication: PRODUCT USED FOR UNKNOWN INDICATION
     Dosage: 2.5 MG, QD
     Route: 065
  3. KISQALI [Suspect]
     Active Substance: RIBOCICLIB
     Indication: BREAST CANCER
     Dosage: 600 MG, QD
     Route: 065
     Dates: start: 20200228, end: 202005
  4. KISQALI [Suspect]
     Active Substance: RIBOCICLIB
     Dosage: 600 MG, QD
     Route: 048

REACTIONS (9)
  - White blood cell count decreased [Recovering/Resolving]
  - Phlebitis [Recovered/Resolved]
  - Inflammation [Recovering/Resolving]
  - Neutrophil count decreased [Unknown]
  - Decreased immune responsiveness [Recovering/Resolving]
  - Cystitis [Recovering/Resolving]
  - Red blood cell count decreased [Unknown]
  - Bladder pain [Recovering/Resolving]
  - Pain in extremity [Recovered/Resolved]

NARRATIVE: CASE EVENT DATE: 202005
